FAERS Safety Report 6593994-X (Version None)
Quarter: 2010Q1

REPORT INFORMATION
  Report Type: 
  Country: None (occurrence: None)
  Receive Date: 20100212
  Receipt Date: 20100204
  Transmission Date: 20100710
  Serious: Yes (Other)
  Sender: FDA-Public Use
  Company Number: 499580

PATIENT
  Age: 35 Year
  Sex: Female

DRUGS (5)
  1. (METHOTREXATE) [Suspect]
     Indication: CHORIOCARCINOMA
  2. VINCRISTINE SULFATE [Suspect]
     Indication: CHORIOCARCINOMA
  3. ETOPOSIDE [Suspect]
     Indication: CHORIOCARCINOMA
  4. (ACTINOMYCIN D) [Suspect]
     Indication: CHORIOCARCINOMA
  5. (CYCLOPHOSPHAMIDE) [Suspect]
     Indication: CHORIOCARCINOMA

REACTIONS (1)
  - HEPATITIS B [None]
